FAERS Safety Report 6210422-4 (Version None)
Quarter: 2009Q2

REPORT INFORMATION
  Report Type: 
  Country: None (occurrence: None)
  Receive Date: 20090529
  Receipt Date: 20090529
  Transmission Date: 20091009
  Serious: Yes (Hospitalization, Other)
  Sender: FDA-Public Use
  Company Number: None

PATIENT
  Age: 61 Year
  Sex: Female

DRUGS (2)
  1. CITALOPRAM HYDROBROMIDE [Suspect]
     Dosage: 20 MG PO DAILY
     Route: 048
     Dates: start: 20090112, end: 20090216
  2. FLUOXETINE HCL [Suspect]

REACTIONS (4)
  - AGGRESSION [None]
  - AGITATION [None]
  - BITE [None]
  - CONFUSIONAL STATE [None]
